FAERS Safety Report 15906121 (Version 1)
Quarter: 2019Q1

REPORT INFORMATION
  Report Type: Spontaneous
  Country: US (occurrence: US)
  Receive Date: 20190203
  Receipt Date: 20190203
  Transmission Date: 20190417
  Serious: No
  Sender: FDA-Public Use
  Company Number: None

PATIENT
  Age: 65 Year
  Sex: Female
  Weight: 61.2 kg

DRUGS (1)
  1. METRONIDAZOLE 500 MG [Suspect]
     Active Substance: METRONIDAZOLE
     Indication: BACTERIAL VAGINOSIS
     Route: 048
     Dates: start: 20180128, end: 20190203

REACTIONS (3)
  - Fatigue [None]
  - Feeling abnormal [None]
  - Feeling drunk [None]

NARRATIVE: CASE EVENT DATE: 20190128
